FAERS Safety Report 15401049 (Version 2)
Quarter: 2019Q3

REPORT INFORMATION
  Report Type: Spontaneous
  Country: US (occurrence: US)
  Receive Date: 20180919
  Receipt Date: 20190718
  Transmission Date: 20191004
  Serious: Yes (Disabling, Other)
  Sender: FDA-Public Use
  Company Number: US-AUROBINDO-AUR-APL-2018-045722

PATIENT

DRUGS (1)
  1. VANCOMYCIN [Suspect]
     Active Substance: VANCOMYCIN
     Indication: INTERVERTEBRAL DISCITIS
     Dosage: LONG TERM/MULTIPLE COURSES
     Route: 042

REACTIONS (3)
  - Toxicity to various agents [Not Recovered/Not Resolved]
  - Hypertension [Unknown]
  - Hypoacusis [Not Recovered/Not Resolved]
